FAERS Safety Report 4635569-5 (Version None)
Quarter: 2005Q2

REPORT INFORMATION
  Report Type: 
  Country: None (occurrence: None)
  Receive Date: 20050413
  Receipt Date: 20050405
  Transmission Date: 20051028
  Serious: No
  Sender: FDA-Public Use
  Company Number: 2005PK00508

PATIENT
  Age: 62 Year
  Sex: Female
  Weight: 62 kg

DRUGS (2)
  1. NAROPIN [Suspect]
     Dosage: 300 MG DAILY PNEU
  2. XYLONEST [Suspect]
     Dosage: 200 MG DAILY PNEU

REACTIONS (5)
  - CONVULSION [None]
  - EXTRASYSTOLES [None]
  - MEDICATION ERROR [None]
  - MEMORY IMPAIRMENT [None]
  - TACHYCARDIA [None]
